FAERS Safety Report 9671807 (Version 2)
Quarter: 2014Q2

REPORT INFORMATION
  Report Type: Spontaneous
  Country: IT (occurrence: IT)
  Receive Date: 20131106
  Receipt Date: 20140425
  Transmission Date: 20141212
  Serious: Yes (Hospitalization)
  Sender: FDA-Public Use
  Company Number: IT-SA-2013SA110616

PATIENT
  Age: 14 Year
  Sex: Female

DRUGS (6)
  1. RIFADIN [Suspect]
     Indication: PULMONARY TUBERCULOSIS
     Route: 048
     Dates: start: 20130605, end: 20130622
  2. NICOZID [Suspect]
     Indication: PULMONARY TUBERCULOSIS
     Route: 048
     Dates: start: 20130605, end: 20130620
  3. ETAPIAM [Concomitant]
     Indication: PULMONARY TUBERCULOSIS
     Route: 048
     Dates: start: 20130605, end: 20130622
  4. PIRALDINA [Concomitant]
     Indication: PULMONARY TUBERCULOSIS
     Route: 048
     Dates: start: 20130605, end: 20130622
  5. BENADON [Concomitant]
     Indication: PULMONARY TUBERCULOSIS
     Route: 048
     Dates: start: 20130605, end: 20130622
  6. MACLADIN [Concomitant]
     Dates: start: 20130525, end: 20130529

REACTIONS (5)
  - Conjunctival hyperaemia [Recovered/Resolved]
  - Headache [Recovered/Resolved]
  - Abdominal pain [Recovered/Resolved]
  - Hypertransaminasaemia [Recovered/Resolved]
  - Thrombocytopenia [Recovered/Resolved]
